FAERS Safety Report 5397316-1 (Version None)
Quarter: 2007Q3

REPORT INFORMATION
  Report Type: 
  Country: None (occurrence: None)
  Receive Date: 20070723
  Receipt Date: 20070705
  Transmission Date: 20080115
  Serious: Yes (Other)
  Sender: FDA-Public Use
  Company Number: 2007BI015040

PATIENT

DRUGS (2)
  1. ZEVALIN [Suspect]
     Indication: MANTLE CELL LYMPHOMA
     Dosage: 1X
     Dates: start: 20070322
  2. RITUXIMAB [Concomitant]

REACTIONS (4)
  - LYMPHADENOPATHY [None]
  - PANCYTOPENIA [None]
  - RASH [None]
  - SWELLING FACE [None]
